FAERS Safety Report 8841785 (Version 1)
Quarter: 2012Q4

REPORT INFORMATION
  Report Type: 
  Country: FR (occurrence: FR)
  Receive Date: 20121016
  Receipt Date: 20121016
  Transmission Date: 20130627
  Serious: Yes (Other)
  Sender: FDA-Public Use
  Company Number: FR-JNJFOC-20121005377

PATIENT
  Age: 13 Year
  Sex: Male

DRUGS (2)
  1. REMICADE [Suspect]
     Indication: CROHN^S DISEASE
     Route: 042
     Dates: start: 2012
  2. REMICADE [Suspect]
     Indication: CROHN^S DISEASE
     Dosage: 6th infusion
     Route: 042

REACTIONS (4)
  - Infusion related reaction [Unknown]
  - Asphyxia [Unknown]
  - Face oedema [Unknown]
  - Urticaria [Unknown]
